FAERS Safety Report 9419639 (Version 1)
Quarter: 2013Q3

REPORT INFORMATION
  Report Type: Spontaneous
  Country: US (occurrence: None)
  Receive Date: 20130724
  Receipt Date: 20130724
  Transmission Date: 20140515
  Serious: No
  Sender: FDA-Public Use
  Company Number: None

PATIENT
  Age: 63 Year
  Sex: Female
  Weight: 73.94 kg

DRUGS (1)
  1. PROCHLORPERAZINE MALEATE [Suspect]
     Dosage: EVERY 6 HRS PRN AS NEEDED
     Dates: start: 20130619, end: 20130621

REACTIONS (4)
  - Dyspepsia [None]
  - Nausea [None]
  - Dizziness [None]
  - Fear [None]
